FAERS Safety Report 8782271 (Version 2)
Quarter: 2012Q4

REPORT INFORMATION
  Report Type: Report from Study
  Country: US (occurrence: US)
  Receive Date: 20120913
  Receipt Date: 20121004
  Transmission Date: 20130627
  Serious: No
  Sender: FDA-Public Use
  Company Number: US-VERTEX PHARMACEUTICAL INC.-2012-019971

PATIENT
  Age: 55 Year
  Sex: Female
  Weight: 70 kg

DRUGS (5)
  1. VX-950 [Suspect]
     Indication: HEPATITIS C
     Dosage: 750 mg, tid
     Route: 048
  2. RIBAVIRIN [Suspect]
     Indication: HEPATITIS C
     Dosage: UNK mg, UNK
     Route: 048
  3. RIBAVIRIN [Suspect]
     Dosage: 1 DF, tid
  4. PEGASYS [Concomitant]
     Indication: HEPATITIS C
     Dosage: 180 UNK, UNK
     Route: 058
  5. LEVOTHYROXIN [Concomitant]
     Dosage: 100 ?g, UNK
     Route: 048

REACTIONS (10)
  - Influenza like illness [Unknown]
  - Oral pain [Unknown]
  - Odynophagia [Unknown]
  - Tongue disorder [Unknown]
  - Dry mouth [Unknown]
  - Dry skin [Unknown]
  - Fatigue [Unknown]
  - Anaemia [Unknown]
  - Dysgeusia [Unknown]
  - Haemorrhoids [Unknown]
